FAERS Safety Report 5406093-7 (Version None)
Quarter: 2007Q3

REPORT INFORMATION
  Report Type: 
  Country: None (occurrence: None)
  Receive Date: 20070806
  Receipt Date: 20070801
  Transmission Date: 20080115
  Serious: Yes (Life-Threatening)
  Sender: FDA-Public Use
  Company Number: PHBS2001JP06669

PATIENT
  Age: 41 Year
  Sex: Female
  Weight: 64.5 kg

DRUGS (12)
  1. NITRODERM [Suspect]
     Indication: ANGINA PECTORIS
     Dosage: 50 MG, UNK
     Route: 062
     Dates: start: 20010516, end: 20010517
  2. METENARIN [Concomitant]
     Indication: UTERINE ATONY
     Dosage: 0.4 MG, UNK
     Route: 042
     Dates: start: 20010516, end: 20010517
  3. BUPRENORPHINE HCL [Concomitant]
     Dates: start: 20010516
  4. ATONIN-O [Concomitant]
     Dosage: 10 IU, UNK
     Route: 061
     Dates: start: 20010516, end: 20010517
  5. PROSTAGLANDIN F2 ALPHA [Concomitant]
     Dosage: 1 MG, UNK
     Route: 042
     Dates: start: 20010516, end: 20010517
  6. NIZATIDINE [Concomitant]
     Dosage: 10 MG, UNK
  7. KN SOL. 3B [Concomitant]
     Dosage: 200 ML, UNK
  8. DORMICUM [Concomitant]
     Indication: SEDATION
     Dosage: 0.5 MG, UNK
     Route: 042
     Dates: start: 20010516
  9. STADOL [Concomitant]
     Indication: ANALGESIA
     Dosage: 0.5 MG, UNK
     Route: 042
     Dates: start: 20010516
  10. DROLEPTAN [Concomitant]
     Dosage: 0.1 MG, UNK
     Dates: start: 20010516
  11. EPHEDRIN [Concomitant]
     Dosage: 78 MG, UNK
     Dates: start: 20010516
  12. OXYTOCIN [Suspect]
     Dosage: 10 DF
     Route: 042

REACTIONS (7)
  - BLOOD PRESSURE DECREASED [None]
  - CHEST DISCOMFORT [None]
  - ELECTROCARDIOGRAM ST SEGMENT DEPRESSION [None]
  - METRORRHAGIA [None]
  - TACHYCARDIA [None]
  - UTERINE HAEMORRHAGE [None]
  - UTERINE HYPOTONUS [None]
